FAERS Safety Report 6014745-3 (Version None)
Quarter: 2008Q4

REPORT INFORMATION
  Report Type: 
  Country: None (occurrence: None)
  Receive Date: 20081212
  Receipt Date: 20081009
  Transmission Date: 20090506
  Serious: Yes (Other)
  Sender: FDA-Public Use
  Company Number: 430014M08USA

PATIENT
  Age: 51 Year
  Sex: Male
  Weight: 111 kg

DRUGS (8)
  1. NOVANTRONE [Suspect]
     Indication: MULTIPLE SCLEROSIS
     Dosage: 1 IN 3 MONTHS, INTRAVENOUS
     Route: 042
     Dates: start: 20070701, end: 20080101
  2. OXYCONTNI (OXYCODONE HYDROCHLORIDE) [Concomitant]
  3. ZANAFLEX [Concomitant]
  4. BACLOFEN [Concomitant]
  5. VESICARE [Concomitant]
  6. DARVOCET [Concomitant]
  7. COPAXONE [Concomitant]
  8. PLASMAPHORESIS (ALL OTHER THERAPEUTIC PRODUCTS) [Concomitant]

REACTIONS (2)
  - INFUSION SITE EXTRAVASATION [None]
  - NECROSIS [None]
